FAERS Safety Report 8777522 (Version 2)
Quarter: 2012Q4

REPORT INFORMATION
  Report Type: 
  Country: PT (occurrence: PT)
  Receive Date: 20120910
  Receipt Date: 20120921
  Transmission Date: 20130627
  Serious: Yes (Hospitalization, Disabling)
  Sender: FDA-Public Use
  Company Number: PT-009507513-1208PRT009240

PATIENT
  Age: 47 Year
  Sex: Female
  Weight: 48 kg

DRUGS (5)
  1. PEGINTRON [Suspect]
     Indication: HEPATITIS C
     Dosage: 80 weekly
     Route: 058
     Dates: start: 20110208, end: 20110627
  2. COPEGUS [Suspect]
     Indication: HEPATITIS C
     Dosage: 1000 mg, qd
     Dates: start: 20110208, end: 20110627
  3. TRUVADA [Concomitant]
     Indication: HIV INFECTION
     Dosage: 1 tablet, qd
  4. TRUVADA [Concomitant]
     Dosage: 1 DF, Once
     Route: 048
  5. KALETRA [Concomitant]
     Indication: HIV INFECTION
     Dosage: 4 tablets, qd

REACTIONS (4)
  - Psychotic disorder [Recovering/Resolving]
  - Somatoform disorder [Recovering/Resolving]
  - Monoparesis [Recovering/Resolving]
  - Monoplegia [Recovered/Resolved with Sequelae]
